FAERS Safety Report 13903684 (Version 3)
Quarter: 2017Q4

REPORT INFORMATION
  Report Type: Report from Study
  Country: LB (occurrence: LB)
  Receive Date: 20170824
  Receipt Date: 20171029
  Transmission Date: 20180320
  Serious: Yes (Death, Hospitalization)
  Sender: FDA-Public Use
  Company Number: PHHY2017LB108420

PATIENT
  Age: 87 Year
  Sex: Female

DRUGS (4)
  1. ENTRESTO [Suspect]
     Active Substance: SACUBITRIL\VALSARTAN
     Dosage: 0.5 DF, BID (200 MG, DIVIDE HALF AM AND HALF PM)
     Route: 048
     Dates: start: 201708, end: 20170825
  2. ENTRESTO [Suspect]
     Active Substance: SACUBITRIL\VALSARTAN
     Dosage: 0.5 DF, QD (HALF OF 200 MG , QD AND AS NEEDED)
     Route: 048
     Dates: start: 20170901, end: 20171006
  3. ENTRESTO [Suspect]
     Active Substance: SACUBITRIL\VALSARTAN
     Indication: PRODUCT USED FOR UNKNOWN INDICATION
     Dosage: 100 MG, BID
     Route: 048
     Dates: start: 20170315, end: 20170323
  4. ENTRESTO [Suspect]
     Active Substance: SACUBITRIL\VALSARTAN
     Dosage: 200 MG, BID
     Route: 048
     Dates: start: 20170323, end: 201707

REACTIONS (11)
  - Diarrhoea [Not Recovered/Not Resolved]
  - Influenza [Recovering/Resolving]
  - Hypotension [Recovering/Resolving]
  - Pulmonary fibrosis [Recovering/Resolving]
  - Immune system disorder [Unknown]
  - Inappropriate schedule of drug administration [Unknown]
  - Gastrointestinal carcinoma [Unknown]
  - Wrong technique in product usage process [Unknown]
  - Nosocomial infection [Unknown]
  - Death [Fatal]
  - Dyspnoea [Recovering/Resolving]

NARRATIVE: CASE EVENT DATE: 201707
